FAERS Safety Report 12996633 (Version 1)
Quarter: 2016Q4

REPORT INFORMATION
  Report Type: Spontaneous
  Country: US (occurrence: US)
  Receive Date: 20161204
  Receipt Date: 20161204
  Transmission Date: 20170207
  Serious: No
  Sender: FDA-Public Use
  Company Number: US-BIOGEN-2016BI00323230

PATIENT
  Sex: Female

DRUGS (1)
  1. AVONEX [Suspect]
     Active Substance: INTERFERON BETA-1A
     Indication: MULTIPLE SCLEROSIS
     Route: 065
     Dates: start: 20160715

REACTIONS (6)
  - Vision blurred [Unknown]
  - Rash pruritic [Unknown]
  - Cough [Unknown]
  - Injection site pain [Unknown]
  - Confusional state [Unknown]
  - Injection site haemorrhage [Unknown]
